FAERS Safety Report 9244329 (Version 1)
Quarter: 2013Q1

REPORT INFORMATION
  Report Type: Spontaneous
  Country: US (occurrence: None)
  Receive Date: 20121130
  Receipt Date: 20121130
  Transmission Date: 20140127
  Serious: Yes (Other)
  Sender: FDA-Public Use
  Company Number: US201207001929

PATIENT
  Sex: Male

DRUGS (3)
  1. BYETTA (EXENATIDE) PEN, DISPOSABLE [Suspect]
     Route: 058
  2. GLYBURIDE (GLIBENCLAMIDE) [Concomitant]
  3. ACTOS (PIOGLITAZONE HYDROCHLORIDE) [Suspect]

REACTIONS (2)
  - Renal impairment [None]
  - Glycosylated haemoglobin increased [None]
